FAERS Safety Report 18071766 (Version 3)
Quarter: 2020Q4

REPORT INFORMATION
  Report Type: Spontaneous
  Country: US (occurrence: US)
  Receive Date: 20200727
  Receipt Date: 20201026
  Transmission Date: 20210113
  Serious: No
  Sender: FDA-Public Use
  Company Number: US-PFIZER INC-2020280639

PATIENT
  Age: 64 Year
  Sex: Female
  Weight: 55.79 kg

DRUGS (12)
  1. IPILIMUMAB [Interacting]
     Active Substance: IPILIMUMAB
     Indication: IMMUNOCHEMOTHERAPY
     Dosage: UNK
     Route: 042
  2. PREDNISONE. [Concomitant]
     Active Substance: PREDNISONE
     Dosage: 5 MG
  3. XELJANZ XR [Interacting]
     Active Substance: TOFACITINIB CITRATE
     Dosage: 11 MG, ONCE A DAY
     Route: 048
     Dates: end: 20200602
  4. NIVOLUMAB [Interacting]
     Active Substance: NIVOLUMAB
     Indication: LUNG NEOPLASM MALIGNANT
  5. BABY ASPIRIN [Concomitant]
     Active Substance: ASPIRIN
     Dosage: 81 MG
  6. PREDNISONE. [Concomitant]
     Active Substance: PREDNISONE
     Dosage: 20 MG
  7. XELJANZ XR [Suspect]
     Active Substance: TOFACITINIB CITRATE
     Indication: RHEUMATOID ARTHRITIS
     Dosage: 11 MG, DAILY
     Route: 048
     Dates: end: 20200601
  8. NIVOLUMAB [Interacting]
     Active Substance: NIVOLUMAB
     Indication: IMMUNOMODULATORY THERAPY
     Dosage: UNK
     Route: 042
  9. PLAVIX [Concomitant]
     Active Substance: CLOPIDOGREL BISULFATE
     Dosage: 75 MG, 1X/DAY
     Dates: start: 2020, end: 202009
  10. PREDNISONE. [Concomitant]
     Active Substance: PREDNISONE
     Dosage: 10 MG
  11. IPILIMUMAB [Interacting]
     Active Substance: IPILIMUMAB
     Indication: LUNG NEOPLASM MALIGNANT
  12. MELOXICAM. [Concomitant]
     Active Substance: MELOXICAM
     Dosage: 15 MG

REACTIONS (5)
  - Rash [Unknown]
  - Movement disorder [Unknown]
  - Drug ineffective [Unknown]
  - Contusion [Unknown]
  - Drug interaction [Unknown]

NARRATIVE: CASE EVENT DATE: 202006
